FAERS Safety Report 13563773 (Version 7)
Quarter: 2017Q3

REPORT INFORMATION
  Report Type: Spontaneous
  Country: KR (occurrence: KR)
  Receive Date: 20170519
  Receipt Date: 20170915
  Transmission Date: 20171127
  Serious: Yes (Hospitalization)
  Sender: FDA-Public Use
  Company Number: KR-009507513-1701KOR008654

PATIENT
  Age: 50 Year
  Sex: Male
  Weight: 64.1 kg

DRUGS (104)
  1. EMEND (FOSAPREPITANT DIMEGLUMINE) [Suspect]
     Active Substance: FOSAPREPITANT DIMEGLUMINE
     Dosage: 150 MG, ONCE
     Route: 042
     Dates: start: 20170311, end: 20170311
  2. DEXAMETHASONE. [Concomitant]
     Active Substance: DEXAMETHASONE
     Dosage: 8 MG, ONCE
     Route: 048
     Dates: start: 20170127, end: 20170127
  3. DEXAMETHASONE. [Concomitant]
     Active Substance: DEXAMETHASONE
     Dosage: 12 MG, ONCE
     Route: 048
     Dates: start: 20170217, end: 20170217
  4. DEXAMETHASONE. [Concomitant]
     Active Substance: DEXAMETHASONE
     Dosage: 8 MG, ONCE
     Route: 048
     Dates: start: 20170218, end: 20170218
  5. DEXAMETHASONE. [Concomitant]
     Active Substance: DEXAMETHASONE
     Dosage: 8 MG, BID
     Route: 048
     Dates: start: 20170219, end: 20170220
  6. DEXAMETHASONE. [Concomitant]
     Active Substance: DEXAMETHASONE
     Dosage: 8 MG, BID
     Route: 048
     Dates: start: 20170423, end: 20170425
  7. DOCETAXEL. [Concomitant]
     Active Substance: DOCETAXEL
     Dosage: 96.625 MG, ONCE, CYCLE 2
     Route: 042
     Dates: start: 20170126, end: 20170126
  8. DOCETAXEL. [Concomitant]
     Active Substance: DOCETAXEL
     Dosage: 96 MG, ONCE, CYCLE 3
     Route: 042
     Dates: start: 20170217, end: 20170217
  9. DOCETAXEL. [Concomitant]
     Active Substance: DOCETAXEL
     Dosage: 111.562 MG, ONCE, CYCLE 5
     Route: 042
     Dates: start: 20170401, end: 20170401
  10. FLUOROURACIL. [Concomitant]
     Active Substance: FLUOROURACIL
     Dosage: 995.625 MG, QD, CYCLE 4
     Route: 042
     Dates: start: 20170311, end: 20170315
  11. FLUOROURACIL. [Concomitant]
     Active Substance: FLUOROURACIL
     Dosage: 1115.625 MG, QD, CYCLE 5
     Route: 042
     Dates: start: 20170401, end: 20170405
  12. MUCOSTEN [Concomitant]
     Indication: POSTOPERATIVE CARE
     Dosage: 200 MG, TID
     Route: 048
     Dates: start: 20161229, end: 20170105
  13. TARGIN [Concomitant]
     Active Substance: NALOXONE HYDROCHLORIDE\OXYCODONE HYDROCHLORIDE
     Indication: CANCER PAIN
     Dosage: 1 TABLET (5/2.5 MG), BID
     Route: 048
     Dates: start: 20161229, end: 20170413
  14. WINUF PERI [Concomitant]
     Dosage: 1450 ML, QD
     Route: 042
     Dates: start: 20170110, end: 20170111
  15. WINUF PERI [Concomitant]
     Dosage: 2020 ML, QD
     Route: 042
     Dates: start: 20170112, end: 20170116
  16. GASTER [Concomitant]
     Active Substance: FAMOTIDINE
     Dosage: 20 MG, BID
     Route: 042
     Dates: start: 20170421, end: 20170425
  17. EMEND (FOSAPREPITANT DIMEGLUMINE) [Suspect]
     Active Substance: FOSAPREPITANT DIMEGLUMINE
     Dosage: 150 MG, ONCE
     Route: 042
     Dates: start: 20170401, end: 20170401
  18. DEXAMETHASONE. [Concomitant]
     Active Substance: DEXAMETHASONE
     Dosage: 8 MG, ONCE
     Route: 048
     Dates: start: 20170312, end: 20170312
  19. DOCETAXEL. [Concomitant]
     Active Substance: DOCETAXEL
     Dosage: 99.562 MG, ONCE, CYCLE 4
     Route: 042
     Dates: start: 20170311, end: 20170311
  20. DOCETAXEL. [Concomitant]
     Active Substance: DOCETAXEL
     Dosage: 111.562 MG, ONCE
     Route: 042
     Dates: start: 20170421, end: 20170421
  21. ROCURONIUM BROMIDE. [Concomitant]
     Active Substance: ROCURONIUM BROMIDE
     Indication: GASTRIC CANCER
     Dosage: 50 MG, ONCE
     Route: 042
     Dates: start: 20161227, end: 20161227
  22. RACICROL [Concomitant]
     Indication: GASTRIC CANCER
     Dosage: 20 ML, ONCE
     Route: 042
     Dates: start: 20161227, end: 20161227
  23. PANTOLINE [Concomitant]
     Active Substance: PANTOPRAZOLE SODIUM
     Indication: PROPHYLAXIS AGAINST GASTROINTESTINAL ULCER
     Dosage: 40 MG, QD
     Route: 042
     Dates: start: 20161229, end: 20161230
  24. POTASSIUM CHLORIDE. [Concomitant]
     Active Substance: POTASSIUM CHLORIDE
     Dosage: 20 MEQ, BID
     Route: 042
     Dates: start: 20170217, end: 20170217
  25. MAGNESIUM SULFATE. [Concomitant]
     Active Substance: MAGNESIUM SULFATE
     Dosage: 2 G, BID
     Route: 042
     Dates: start: 20170421, end: 20170421
  26. FUROSEMIDE. [Concomitant]
     Active Substance: FUROSEMIDE
     Dosage: 20 MG, BID
     Route: 042
     Dates: start: 20170311, end: 20170311
  27. GASTER [Concomitant]
     Active Substance: FAMOTIDINE
     Indication: PROPHYLAXIS
     Dosage: 20 MG, BID
     Route: 042
     Dates: start: 20170126, end: 20170131
  28. CHLORPHENIRAMINE MALEATE. [Concomitant]
     Active Substance: CHLORPHENIRAMINE MALEATE
     Dosage: 4 MG, ONCE
     Route: 042
     Dates: start: 20170110, end: 20170110
  29. EMEND (FOSAPREPITANT DIMEGLUMINE) [Suspect]
     Active Substance: FOSAPREPITANT DIMEGLUMINE
     Dosage: 150 MG, ONCE
     Route: 042
     Dates: start: 20170217, end: 20170217
  30. DEXAMETHASONE ACETATE [Concomitant]
     Active Substance: DEXAMETHASONE ACETATE
     Indication: PREMEDICATION
     Dosage: 10 MG, ONCE
     Route: 042
     Dates: start: 20170105, end: 20170105
  31. DEXAMETHASONE. [Concomitant]
     Active Substance: DEXAMETHASONE
     Dosage: 12 MG, ONCE
     Route: 048
     Dates: start: 20170421, end: 20170421
  32. ZEMIGLO [Concomitant]
     Indication: TYPE 2 DIABETES MELLITUS
     Dosage: 50 MG, QD
     Route: 048
     Dates: start: 20161223, end: 20161226
  33. KETOROLAC TROMETHAMINE. [Concomitant]
     Active Substance: KETOROLAC TROMETHAMINE
     Indication: PROCEDURAL PAIN
     Dosage: 30 MG, BID
     Route: 042
     Dates: start: 20161227, end: 20161229
  34. MUTERAN [Concomitant]
     Active Substance: ACETYLCYSTEINE
     Indication: POSTOPERATIVE CARE
     Dosage: 600 MG, TID
     Route: 042
     Dates: start: 20161227, end: 20161228
  35. MAGNESIUM OXIDE. [Concomitant]
     Active Substance: MAGNESIUM OXIDE
     Indication: CONSTIPATION PROPHYLAXIS
     Dosage: 500 MG, BID
     Route: 048
     Dates: start: 20161229, end: 20170110
  36. IRCODON [Concomitant]
     Active Substance: OXYCODONE HYDROCHLORIDE
     Indication: CANCER PAIN
     Dosage: 5 MG, PRN
     Route: 048
     Dates: start: 20161229, end: 20170222
  37. POTASSIUM CHLORIDE. [Concomitant]
     Active Substance: POTASSIUM CHLORIDE
     Dosage: 20 MEQ, BID
     Route: 042
     Dates: start: 20170126, end: 20170126
  38. FUROSEMIDE. [Concomitant]
     Active Substance: FUROSEMIDE
     Dosage: 2 G, BID
     Route: 042
     Dates: start: 20170217, end: 20170217
  39. GASTER [Concomitant]
     Active Substance: FAMOTIDINE
     Indication: PROPHYLAXIS AGAINST GASTROINTESTINAL ULCER
     Dosage: 20 MG, BID
     Route: 042
     Dates: start: 20170105, end: 20170116
  40. CHLORPHENIRAMINE MALEATE. [Concomitant]
     Active Substance: CHLORPHENIRAMINE MALEATE
     Dosage: 4 MG, ONCE
     Route: 042
     Dates: start: 20170126, end: 20170126
  41. CHLORPHENIRAMINE MALEATE. [Concomitant]
     Active Substance: CHLORPHENIRAMINE MALEATE
     Dosage: 4 MG, ONCE
     Route: 042
     Dates: start: 20170421, end: 20170421
  42. NOVORAPID [Concomitant]
     Active Substance: INSULIN ASPART
     Dosage: 10 UNIT, ONCE
     Route: 042
     Dates: start: 20170128, end: 20170128
  43. EMEND (FOSAPREPITANT DIMEGLUMINE) [Suspect]
     Active Substance: FOSAPREPITANT DIMEGLUMINE
     Indication: PROPHYLAXIS OF NAUSEA AND VOMITING
     Dosage: 150 MG, ONCE
     Route: 042
     Dates: start: 20170105, end: 20170105
  44. DEXAMETHASONE. [Concomitant]
     Active Substance: DEXAMETHASONE
     Dosage: 8 MG, BID
     Route: 048
     Dates: start: 20170313, end: 20170315
  45. DOCETAXEL. [Concomitant]
     Active Substance: DOCETAXEL
     Indication: GASTRIC CANCER
     Dosage: 128.25 MG, ONCE, CYCLE 1
     Route: 042
     Dates: start: 20170105, end: 20170105
  46. FLUOROURACIL. [Concomitant]
     Active Substance: FLUOROURACIL
     Indication: GASTRIC CANCER
     Dosage: 1282.5 MG, DAILY, CYCLE 1
     Route: 042
     Dates: start: 20170105, end: 20170109
  47. BRIDION [Concomitant]
     Active Substance: SUGAMMADEX
     Indication: GASTRIC CANCER
     Dosage: 200 MG, ONCE
     Route: 042
     Dates: start: 20161227, end: 20161227
  48. MAGNESIUM SULFATE. [Concomitant]
     Active Substance: MAGNESIUM SULFATE
     Dosage: 2 G, BID
     Route: 042
     Dates: start: 20170217, end: 20170217
  49. CHLORPHENIRAMINE MALEATE. [Concomitant]
     Active Substance: CHLORPHENIRAMINE MALEATE
     Dosage: 4 MG, ONCE
     Route: 042
     Dates: start: 20170311, end: 20170311
  50. NOVORAPID [Concomitant]
     Active Substance: INSULIN ASPART
     Dosage: 15 UNIT, ONCE
     Route: 042
     Dates: start: 20170129, end: 20170129
  51. DEXAMETHASONE. [Concomitant]
     Active Substance: DEXAMETHASONE
     Indication: PREMEDICATION
     Dosage: 12 MG, ONCE
     Route: 048
     Dates: start: 20170126, end: 20170126
  52. DEXAMETHASONE. [Concomitant]
     Active Substance: DEXAMETHASONE
     Dosage: 12 MG, ONCE
     Route: 048
     Dates: start: 20170401, end: 20170401
  53. DEXAMETHASONE. [Concomitant]
     Active Substance: DEXAMETHASONE
     Dosage: 8 MG, ONCE
     Route: 048
     Dates: start: 20170402, end: 20170402
  54. CISPLATIN. [Concomitant]
     Active Substance: CISPLATIN
     Indication: GASTRIC CANCER
     Dosage: 102.6 MG, ONCE, CYCLE 1
     Route: 042
     Dates: start: 20170105, end: 20170105
  55. PALONOSETRON HYDROCHLORIDE. [Concomitant]
     Active Substance: PALONOSETRON HYDROCHLORIDE
     Indication: PREMEDICATION
     Dosage: 0.25 MG, ONCE
     Route: 042
     Dates: start: 20170105, end: 20170105
  56. PALONOSETRON HYDROCHLORIDE. [Concomitant]
     Active Substance: PALONOSETRON HYDROCHLORIDE
     Dosage: 0.25 MG, ONCE
     Route: 042
     Dates: start: 20170126, end: 20170126
  57. PALONOSETRON HYDROCHLORIDE. [Concomitant]
     Active Substance: PALONOSETRON HYDROCHLORIDE
     Dosage: 0.25 MG, ONCE
     Route: 042
     Dates: start: 20170217, end: 20170217
  58. CEFOTIAM [Concomitant]
     Active Substance: CEFOTIAM
     Indication: INFECTION PROPHYLAXIS
     Dosage: 1 G, BID
     Route: 042
     Dates: start: 20161227, end: 20161227
  59. POTASSIUM CHLORIDE. [Concomitant]
     Active Substance: POTASSIUM CHLORIDE
     Indication: MINERAL SUPPLEMENTATION
     Dosage: 20 MEQ, BID
     Route: 042
     Dates: start: 20170105, end: 20170105
  60. MAGNESIUM SULFATE. [Concomitant]
     Active Substance: MAGNESIUM SULFATE
     Dosage: 2 G, BID
     Route: 042
     Dates: start: 20170401, end: 20170401
  61. FUROSEMIDE. [Concomitant]
     Active Substance: FUROSEMIDE
     Indication: PROPHYLAXIS
     Dosage: 20 MG, BID
     Route: 042
     Dates: start: 20170105, end: 20170105
  62. FUROSEMIDE. [Concomitant]
     Active Substance: FUROSEMIDE
     Dosage: 20 MG, BID
     Route: 042
     Dates: start: 20170126, end: 20170126
  63. FUROSEMIDE. [Concomitant]
     Active Substance: FUROSEMIDE
     Dosage: 20 MG, BID
     Route: 042
     Dates: start: 20170421, end: 20170421
  64. GASTER [Concomitant]
     Active Substance: FAMOTIDINE
     Dosage: 20 MG, BID
     Route: 042
     Dates: start: 20170217, end: 20170221
  65. GASTER [Concomitant]
     Active Substance: FAMOTIDINE
     Dosage: 20 MG, BID
     Route: 042
     Dates: start: 20170401, end: 20170405
  66. CHLORPHENIRAMINE MALEATE. [Concomitant]
     Active Substance: CHLORPHENIRAMINE MALEATE
     Indication: ALLERGY PROPHYLAXIS
     Dosage: 4 MG, ONCE
     Route: 042
     Dates: start: 20170105, end: 20170105
  67. NOVORAPID [Concomitant]
     Active Substance: INSULIN ASPART
     Dosage: 8 UNIT, QD
     Route: 042
     Dates: start: 20170130, end: 20170131
  68. EMEND (FOSAPREPITANT DIMEGLUMINE) [Suspect]
     Active Substance: FOSAPREPITANT DIMEGLUMINE
     Dosage: 150 MG, ONCE
     Route: 042
     Dates: start: 20170126, end: 20170126
  69. DEXAMETHASONE. [Concomitant]
     Active Substance: DEXAMETHASONE
     Dosage: 8 MG, BID
     Route: 048
     Dates: start: 20170403, end: 20170404
  70. CISPLATIN. [Concomitant]
     Active Substance: CISPLATIN
     Dosage: 89.25 MG, ONCE
     Route: 042
     Dates: start: 20170421, end: 20170421
  71. FLUOROURACIL. [Concomitant]
     Active Substance: FLUOROURACIL
     Dosage: 956.25, QD, CYCLE 2
     Route: 042
     Dates: start: 20170126, end: 20170130
  72. FLUOROURACIL. [Concomitant]
     Active Substance: FLUOROURACIL
     Dosage: 967 MG, QD, CYCLE 3
     Route: 042
     Dates: start: 20170217, end: 20170221
  73. PALONOSETRON HYDROCHLORIDE. [Concomitant]
     Active Substance: PALONOSETRON HYDROCHLORIDE
     Dosage: 0.25 MG, ONCE
     Route: 042
     Dates: start: 20170421, end: 20170421
  74. PROPOFOL. [Concomitant]
     Active Substance: PROPOFOL
     Indication: GASTRIC CANCER
     Dosage: 100 MG, ONCE
     Route: 042
     Dates: start: 20161227, end: 20161227
  75. POTASSIUM CHLORIDE. [Concomitant]
     Active Substance: POTASSIUM CHLORIDE
     Dosage: 20 MEQ, BID
     Route: 042
     Dates: start: 20170421, end: 20170421
  76. MAGNESIUM SULFATE. [Concomitant]
     Active Substance: MAGNESIUM SULFATE
     Indication: MINERAL SUPPLEMENTATION
     Dosage: 2 G, BID
     Route: 042
     Dates: start: 20170105, end: 20170105
  77. FUROSEMIDE. [Concomitant]
     Active Substance: FUROSEMIDE
     Dosage: 20 MG, BID
     Route: 042
     Dates: start: 20170401, end: 20170401
  78. GASTER [Concomitant]
     Active Substance: FAMOTIDINE
     Dosage: 20 MG, BID
     Route: 042
     Dates: start: 20170311, end: 20170315
  79. NOVORAPID [Concomitant]
     Active Substance: INSULIN ASPART
     Indication: TYPE 2 DIABETES MELLITUS
     Dosage: 18 UNIT, CONTINUOUS
     Route: 042
     Dates: start: 20170107, end: 20170107
  80. EMEND (FOSAPREPITANT DIMEGLUMINE) [Suspect]
     Active Substance: FOSAPREPITANT DIMEGLUMINE
     Dosage: 150 MG, ONCE
     Route: 042
     Dates: start: 20170421, end: 20170421
  81. DEXAMETHASONE. [Concomitant]
     Active Substance: DEXAMETHASONE
     Dosage: 8 MG, BID
     Route: 048
     Dates: start: 20170128, end: 20170129
  82. DEXAMETHASONE. [Concomitant]
     Active Substance: DEXAMETHASONE
     Dosage: 8 MG, ONCE
     Route: 048
     Dates: start: 20170422, end: 20170422
  83. CISPLATIN. [Concomitant]
     Active Substance: CISPLATIN
     Dosage: 77 MG, ONCE, CYCLE 3
     Route: 042
     Dates: start: 20170217, end: 20170217
  84. CISPLATIN. [Concomitant]
     Active Substance: CISPLATIN
     Dosage: 89.25 MG, ONCE, CYCLE 5
     Route: 042
     Dates: start: 20170401, end: 20170401
  85. FLUOROURACIL. [Concomitant]
     Active Substance: FLUOROURACIL
     Dosage: 1115.625 MG, ONCE
     Route: 042
     Dates: start: 20170421, end: 20170425
  86. REMIFENTAMIL [Concomitant]
     Indication: GASTRIC CANCER
     Dosage: 2 MG, ONCE
     Route: 042
     Dates: start: 20161227, end: 20161227
  87. TAMIPOOL [Concomitant]
     Active Substance: VITAMINS
     Indication: VITAMIN SUPPLEMENTATION
     Dosage: 1 VIAL, QD
     Route: 042
     Dates: start: 20161227, end: 20170105
  88. GASTER [Concomitant]
     Active Substance: FAMOTIDINE
     Indication: PROPHYLAXIS AGAINST GASTROINTESTINAL ULCER
     Dosage: 20 MG, BID
     Route: 048
     Dates: start: 20161231, end: 20170105
  89. MAGNESIUM SULFATE. [Concomitant]
     Active Substance: MAGNESIUM SULFATE
     Dosage: 2 G, BID
     Route: 042
     Dates: start: 20170311, end: 20170311
  90. CHLORPHENIRAMINE MALEATE. [Concomitant]
     Active Substance: CHLORPHENIRAMINE MALEATE
     Dosage: 4 MG, ONCE
     Route: 042
     Dates: start: 20170217, end: 20170217
  91. NOVORAPID [Concomitant]
     Active Substance: INSULIN ASPART
     Dosage: 20 UNIT, CONTINUOUS
     Route: 042
     Dates: start: 20170108, end: 20170109
  92. DEXAMETHASONE ACETATE [Concomitant]
     Active Substance: DEXAMETHASONE ACETATE
     Dosage: 10 MG, ONCE
     Route: 042
     Dates: start: 20170106, end: 20170108
  93. DEXAMETHASONE. [Concomitant]
     Active Substance: DEXAMETHASONE
     Dosage: 12 MG, ONCE
     Route: 048
     Dates: start: 20170311, end: 20170311
  94. CISPLATIN. [Concomitant]
     Active Substance: CISPLATIN
     Dosage: 76.5 MG, ONCE, CYCLE 2
     Route: 042
     Dates: start: 20170126, end: 20170126
  95. CISPLATIN. [Concomitant]
     Active Substance: CISPLATIN
     Dosage: 79.65 MG, ONCE, CYCLE 4
     Route: 042
     Dates: start: 20170311, end: 20170311
  96. RAMOSETRON [Concomitant]
     Active Substance: RAMOSETRON HYDROCHLORIDE
     Indication: GASTRIC CANCER
     Dosage: 0.3 MG, ONCE
     Route: 042
     Dates: start: 20161227, end: 20161227
  97. PALONOSETRON HYDROCHLORIDE. [Concomitant]
     Active Substance: PALONOSETRON HYDROCHLORIDE
     Dosage: 0.25 MG, ONCE
     Route: 042
     Dates: start: 20170311, end: 20170311
  98. PALONOSETRON HYDROCHLORIDE. [Concomitant]
     Active Substance: PALONOSETRON HYDROCHLORIDE
     Dosage: 0.25 MG, ONCE
     Route: 042
     Dates: start: 20170401, end: 20170401
  99. WINUF PERI [Concomitant]
     Indication: DECREASED APPETITE
     Dosage: 1450 ML, CONTINUOUS
     Route: 042
     Dates: start: 20161230, end: 20170105
  100. POTASSIUM CHLORIDE. [Concomitant]
     Active Substance: POTASSIUM CHLORIDE
     Dosage: 20 MEQ, ONCE
     Route: 042
     Dates: start: 20170311, end: 20170311
  101. POTASSIUM CHLORIDE. [Concomitant]
     Active Substance: POTASSIUM CHLORIDE
     Dosage: 20 MEQ, BID
     Route: 042
     Dates: start: 20170401, end: 20170401
  102. MAGNESIUM SULFATE. [Concomitant]
     Active Substance: MAGNESIUM SULFATE
     Dosage: 2 G, BID
     Route: 042
     Dates: start: 20170126, end: 20170126
  103. CHLORPHENIRAMINE MALEATE. [Concomitant]
     Active Substance: CHLORPHENIRAMINE MALEATE
     Dosage: 4 MG, ONCE
     Route: 042
     Dates: start: 20170401, end: 20170401
  104. NOVORAPID [Concomitant]
     Active Substance: INSULIN ASPART
     Dosage: 4 UNIT, ONCE
     Route: 058
     Dates: start: 20170401, end: 20170401

REACTIONS (13)
  - Alanine aminotransferase increased [Recovered/Resolved]
  - Lumbar radiculopathy [Recovering/Resolving]
  - Neutrophil count decreased [Recovered/Resolved]
  - Headache [Recovered/Resolved]
  - Diarrhoea [Recovered/Resolved]
  - Diarrhoea [Recovered/Resolved]
  - Lumbar radiculopathy [Recovered/Resolved]
  - Constipation [Recovered/Resolved]
  - Lumbar radiculopathy [Recovered/Resolved]
  - Nausea [Recovered/Resolved]
  - Neutrophil count decreased [Recovered/Resolved]
  - Aspartate aminotransferase increased [Recovered/Resolved]
  - Pyrexia [Recovered/Resolved]

NARRATIVE: CASE EVENT DATE: 20170107
